FAERS Safety Report 15507137 (Version 2)
Quarter: 2018Q4

REPORT INFORMATION
  Report Type: Spontaneous
  Country: US (occurrence: US)
  Receive Date: 20181016
  Receipt Date: 20181204
  Transmission Date: 20190205
  Serious: Yes (Other)
  Sender: FDA-Public Use
  Company Number: US-BAYER-2018-191777

PATIENT
  Age: 20 Year
  Sex: Female

DRUGS (2)
  1. MIRENA [Suspect]
     Active Substance: LEVONORGESTREL
     Dosage: 20 MCG/24HR, CONT
     Route: 015
     Dates: start: 20170106
  2. MIRENA [Suspect]
     Active Substance: LEVONORGESTREL
     Dosage: UNK

REACTIONS (3)
  - Pregnancy with contraceptive device [None]
  - Drug ineffective [None]
  - Device expulsion [None]
